FAERS Safety Report 8391238-X (Version None)
Quarter: 2012Q2

REPORT INFORMATION
  Report Type: 
  Country: None (occurrence: None)
  Receive Date: 20120529
  Receipt Date: 20120515
  Transmission Date: 20120825
  Serious: No
  Sender: FDA-Public Use
  Company Number: US-JNJFOC-20120515546

PATIENT
  Sex: Female
  Weight: 85.82 kg

DRUGS (2)
  1. KLONOPIN [Concomitant]
     Dosage: AS NEEDED
     Route: 048
  2. INVEGA SUSTENNA [Suspect]
     Indication: PRODUCT USED FOR UNKNOWN INDICATION
     Route: 030
     Dates: start: 20110620, end: 20120501

REACTIONS (1)
  - WEIGHT INCREASED [None]
